FAERS Safety Report 12714716 (Version 1)
Quarter: 2016Q3

REPORT INFORMATION
  Report Type: Spontaneous
  Country: US (occurrence: US)
  Receive Date: 20160905
  Receipt Date: 20160905
  Transmission Date: 20161109
  Serious: No
  Sender: FDA-Public Use
  Company Number: US-AMGEN-USASP2016117797

PATIENT
  Age: 45 Year
  Sex: Female

DRUGS (18)
  1. CYMBALTA [Concomitant]
     Active Substance: DULOXETINE HYDROCHLORIDE
     Dosage: UNK
  2. VERAMYST [Concomitant]
     Active Substance: FLUTICASONE FUROATE
     Dosage: UNK
  3. ENBREL [Suspect]
     Active Substance: ETANERCEPT
     Indication: ANKYLOSING SPONDYLITIS
  4. DICLOFENAC [Concomitant]
     Active Substance: DICLOFENAC
     Dosage: UNK
  5. BENADRYL [Concomitant]
     Active Substance: DIPHENHYDRAMINE HYDROCHLORIDE
     Dosage: UNK
  6. EXCEDRIN [Concomitant]
     Active Substance: ACETAMINOPHEN\ASPIRIN\CAFFEINE
     Dosage: UNK
  7. VITAMIN D3 [Concomitant]
     Active Substance: CHOLECALCIFEROL
     Dosage: UNK
  8. LOESTRIN NOS [Concomitant]
     Active Substance: ETHINYL ESTRADIOL\NORETHINDRONE ACETATE
     Dosage: UNK
  9. MONTELUKAST [Concomitant]
     Active Substance: MONTELUKAST SODIUM
     Dosage: UNK
  10. PREMPRO [Concomitant]
     Active Substance: ESTROGENS, CONJUGATED\MEDROXYPROGESTERONE ACETATE
     Dosage: UNK
  11. ENBREL [Suspect]
     Active Substance: ETANERCEPT
     Indication: PSORIATIC ARTHROPATHY
     Dosage: 50 MG, WEEKLY
     Route: 058
     Dates: start: 201608
  12. ALLEGRA [Concomitant]
     Active Substance: FEXOFENADINE HYDROCHLORIDE
     Dosage: UNK
  13. NASONEX [Concomitant]
     Active Substance: MOMETASONE FUROATE
     Dosage: UNK
  14. OMEPRAZOLE. [Concomitant]
     Active Substance: OMEPRAZOLE
     Dosage: UNK
  15. TYLENOL [Concomitant]
     Active Substance: ACETAMINOPHEN
     Dosage: UNK
  16. ROBITUSSIN (GUAIFENESIN) [Concomitant]
     Active Substance: GUAIFENESIN
     Dosage: UNK
  17. ALIGN [Concomitant]
     Active Substance: BIFIDOBACTERIUM LONGUM SUBSP. INFANTIS
     Dosage: UNK
  18. LYRICA [Concomitant]
     Active Substance: PREGABALIN
     Dosage: UNK

REACTIONS (1)
  - Fatigue [Unknown]

NARRATIVE: CASE EVENT DATE: 201608
